FAERS Safety Report 9927687 (Version 1)
Quarter: 2014Q1

REPORT INFORMATION
  Report Type: Spontaneous
  Country: DE (occurrence: DE)
  Receive Date: 20140227
  Receipt Date: 20140227
  Transmission Date: 20141002
  Serious: Yes (Other)
  Sender: FDA-Public Use
  Company Number: DE-BEH-2014040771

PATIENT
  Sex: Female

DRUGS (1)
  1. PRIVIGEN [Suspect]

REACTIONS (1)
  - Encephalitis [Unknown]
